FAERS Safety Report 7394004-7 (Version None)
Quarter: 2011Q2

REPORT INFORMATION
  Report Type: 
  Country: None (occurrence: None)
  Receive Date: 20110405
  Receipt Date: 20100728
  Transmission Date: 20111010
  Serious: No
  Sender: FDA-Public Use
  Company Number: US-AMGEN-KDL427874

PATIENT
  Sex: Female

DRUGS (2)
  1. NEULASTA [Suspect]
     Dosage: 4 MG, UNK
  2. NEULASTA [Suspect]
     Indication: CHEMOTHERAPY
     Dosage: 6 MG, UNK

REACTIONS (1)
  - BONE PAIN [None]
